FAERS Safety Report 7965527-4 (Version None)
Quarter: 2011Q4

REPORT INFORMATION
  Report Type: 
  Country: None (occurrence: None)
  Receive Date: 20111208
  Receipt Date: 20111201
  Transmission Date: 20120403
  Serious: No
  Sender: FDA-Public Use
  Company Number: IT-JNJFOC-20111202021

PATIENT
  Age: 49 Year
  Sex: Female

DRUGS (4)
  1. MEDROL [Concomitant]
     Indication: PREMEDICATION
     Route: 042
  2. CHLORPHENIRAMINE MALEATE [Concomitant]
     Indication: PREMEDICATION
     Route: 030
  3. ACETAMOL [Concomitant]
     Indication: PREMEDICATION
     Route: 048
  4. REMICADE [Suspect]
     Indication: ANKYLOSING SPONDYLITIS
     Route: 042
     Dates: start: 20060206

REACTIONS (4)
  - CANDIDIASIS [None]
  - CULTURE URINE POSITIVE [None]
  - CYSTITIS [None]
  - ECZEMA [None]
